FAERS Safety Report 7288832-6 (Version None)
Quarter: 2011Q1

REPORT INFORMATION
  Report Type: 
  Country: None (occurrence: None)
  Receive Date: 20110211
  Receipt Date: 20110211
  Transmission Date: 20110831
  Serious: Yes (Death, Hospitalization)
  Sender: FDA-Public Use
  Company Number: BE-ELI_LILLY_AND_COMPANY-BE201002007209

PATIENT
  Sex: Male
  Weight: 71 kg

DRUGS (21)
  1. PEMETREXED [Suspect]
     Dosage: 905 MG, UNK
     Route: 042
     Dates: start: 20091230, end: 20091230
  2. PARACETAMOL [Concomitant]
     Indication: PAIN
     Dosage: 1 G, 4/D
     Dates: start: 20091228
  3. PULMICORT [Concomitant]
     Indication: CHRONIC OBSTRUCTIVE PULMONARY DISEASE
     Dates: start: 20091214, end: 20091228
  4. OMEPRAZOLE [Concomitant]
     Indication: OESOPHAGITIS
     Dosage: UNK, UNK
     Dates: start: 20091229, end: 20100205
  5. ZOLPIDEM [Concomitant]
     Indication: INSOMNIA
     Dosage: 10 MG, AS NEEDED
     Route: 048
     Dates: start: 20091228, end: 20100204
  6. MEDROL [Concomitant]
     Indication: PROPHYLAXIS
     Dosage: 32 MG, DAILY (1/D)
     Dates: start: 20091229, end: 20100205
  7. DAFLON [Concomitant]
     Dates: start: 20091213, end: 20100205
  8. SOFTENE [Concomitant]
     Indication: CONSTIPATION
     Dosage: 2 D/F, AS NEEDED
     Route: 065
     Dates: start: 20091228
  9. DURAGESIC-100 [Concomitant]
     Indication: PAIN
     Dosage: UNK, UNK
     Dates: start: 20091226, end: 20100205
  10. VENTOLIN                                /SCH/ [Concomitant]
     Indication: CHRONIC OBSTRUCTIVE PULMONARY DISEASE
     Dates: start: 20091214, end: 20091228
  11. LYSOMUCIL [Concomitant]
     Indication: BRONCHITIS
     Dates: start: 20091214, end: 20091217
  12. CISPLATIN [Suspect]
     Dosage: 136 MG, OTHER
     Route: 042
     Dates: start: 20091230, end: 20091230
  13. ALPRAZOLAM [Concomitant]
     Indication: INSOMNIA
     Dosage: 0.5 MG, 4/D
     Dates: start: 20091224, end: 20100205
  14. MS DIRECT [Concomitant]
     Indication: PAIN
     Dosage: UNK, UNK
     Dates: start: 20091228, end: 20100130
  15. MOVICOL [Concomitant]
     Indication: CONSTIPATION
     Dosage: 2 D/F, DAILY (1/D)
     Route: 065
     Dates: start: 20091228, end: 20100119
  16. NECITUMUMAB (11F8) (LY3012211) [Suspect]
     Dosage: 800 MG, UNK
     Route: 042
     Dates: start: 20091230, end: 20091230
  17. VITAMIN B-12 [Concomitant]
     Indication: PREMEDICATION
     Dates: start: 20091223
  18. COMBIVENT [Concomitant]
     Indication: PRODUCT USED FOR UNKNOWN INDICATION
     Dosage: 3 D/F, DAILY (1/D)
     Route: 055
     Dates: start: 20091217, end: 20100203
  19. FOLAVIT [Concomitant]
     Indication: PREMEDICATION
     Dosage: 0.4 MG, DAILY (1/D)
     Dates: start: 20091223
  20. IBUPROFEN [Concomitant]
     Indication: PAIN
     Dosage: 3 D/F, DAILY (1/D)
     Dates: start: 20091221, end: 20100104
  21. CLEXAN [Concomitant]
     Indication: EMBOLISM ARTERIAL
     Dosage: UNK, UNK
     Dates: start: 20091130, end: 20100205

REACTIONS (1)
  - PERIPHERAL ISCHAEMIA [None]
